FAERS Safety Report 9841163 (Version 1)
Quarter: 2014Q1

REPORT INFORMATION
  Report Type: Spontaneous
  Country: US (occurrence: None)
  Receive Date: 20140123
  Receipt Date: 20140123
  Transmission Date: 20141002
  Serious: No
  Sender: FDA-Public Use
  Company Number: None

PATIENT
  Age: 57 Year
  Sex: Female
  Weight: 86.18 kg

DRUGS (1)
  1. BUTRANS [Suspect]
     Indication: PAIN
     Route: 062
     Dates: start: 20131211, end: 20140110

REACTIONS (2)
  - Application site erythema [None]
  - Application site vesicles [None]
